FAERS Safety Report 4385685-0 (Version None)
Quarter: 2004Q2

REPORT INFORMATION
  Report Type: 
  Country: None (occurrence: None)
  Receive Date: 20040622
  Receipt Date: 20040609
  Transmission Date: 20050107
  Serious: Yes (Other)
  Sender: FDA-Public Use
  Company Number: A0502473A

PATIENT
  Age: 62 Year
  Sex: Female
  Weight: 58.9676 kg

DRUGS (3)
  1. COMMIT [Suspect]
     Indication: EX-SMOKER
     Dosage: 2 MG/FOUR TIMES PER DAY/TRANSB
     Dates: start: 20040301, end: 20040308
  2. CONJUGATED ESTROGENS [Concomitant]
  3. LOVASTATIN [Concomitant]

REACTIONS (7)
  - CAUSTIC INJURY [None]
  - DYSPHAGIA [None]
  - GINGIVAL PAIN [None]
  - MOUTH ULCERATION [None]
  - ORAL PAIN [None]
  - SCAR [None]
  - STOMATITIS [None]
